FAERS Safety Report 13761359 (Version 1)
Quarter: 2017Q3

REPORT INFORMATION
  Report Type: Spontaneous
  Country: US (occurrence: US)
  Receive Date: 20170717
  Receipt Date: 20170717
  Transmission Date: 20171127
  Serious: No
  Sender: FDA-Public Use
  Company Number: US-ELI_LILLY_AND_COMPANY-US201707004431

PATIENT
  Sex: Female

DRUGS (8)
  1. ALENDRONATE [Concomitant]
     Active Substance: ALENDRONATE SODIUM
     Indication: OSTEOPENIA
  2. PANTOPRAZOLE [Concomitant]
     Active Substance: PANTOPRAZOLE
     Indication: GASTROOESOPHAGEAL REFLUX DISEASE
  3. METOPROLOL. [Concomitant]
     Active Substance: METOPROLOL
     Indication: HYPERTENSION
  4. TRULICITY [Suspect]
     Active Substance: DULAGLUTIDE
     Indication: DIABETES MELLITUS
     Dosage: 0.75 MG, UNKNOWN
     Route: 058
     Dates: start: 2016
  5. METFORMIN [Concomitant]
     Active Substance: METFORMIN HYDROCHLORIDE
     Indication: DIABETES MELLITUS
  6. BABY ASPIRIN [Concomitant]
     Active Substance: ASPIRIN
     Indication: ROUTINE HEALTH MAINTENANCE
  7. LOSARTAN. [Concomitant]
     Active Substance: LOSARTAN
     Indication: HEART RATE INCREASED
  8. SIMVASTATIN. [Concomitant]
     Active Substance: SIMVASTATIN
     Indication: BLOOD CHOLESTEROL INCREASED

REACTIONS (5)
  - Pharyngeal oedema [Not Recovered/Not Resolved]
  - Malaise [Unknown]
  - Diarrhoea [Unknown]
  - Food poisoning [Unknown]
  - Tonsillitis [Unknown]

NARRATIVE: CASE EVENT DATE: 20170710
